FAERS Safety Report 5533051-4 (Version None)
Quarter: 2007Q4

REPORT INFORMATION
  Report Type: 
  Country: None (occurrence: None)
  Receive Date: 20071204
  Receipt Date: 20071129
  Transmission Date: 20080405
  Serious: Yes (Hospitalization)
  Sender: FDA-Public Use
  Company Number: ES-SP-2007-04104

PATIENT
  Age: 76 Year
  Sex: Male

DRUGS (1)
  1. BCG  THERAPEUTICS [Suspect]
     Indication: BLADDER CANCER
     Dosage: ONCE A WEEK
     Route: 043
     Dates: start: 20040501, end: 20041001

REACTIONS (3)
  - NEPHRITIS INTERSTITIAL [None]
  - NEPHROSCLEROSIS [None]
  - RENAL FAILURE ACUTE [None]
